FAERS Safety Report 4519334-5 (Version None)
Quarter: 2004Q4

REPORT INFORMATION
  Report Type: 
  Country: None (occurrence: None)
  Receive Date: 20041206
  Receipt Date: 20041125
  Transmission Date: 20050328
  Serious: Yes (Other)
  Sender: FDA-Public Use
  Company Number: AU-GLAXOSMITHKLINE-B0358995A

PATIENT
  Sex: Female

DRUGS (1)
  1. ZYBAN [Suspect]
     Dates: start: 20041117, end: 20041124

REACTIONS (5)
  - EYE PAIN [None]
  - GAZE PALSY [None]
  - HEADACHE [None]
  - INSOMNIA [None]
  - NAUSEA [None]
